FAERS Safety Report 17544636 (Version 2)
Quarter: 2020Q1

REPORT INFORMATION
  Report Type: Spontaneous
  Country: US (occurrence: US)
  Receive Date: 20200316
  Receipt Date: 20200330
  Transmission Date: 20200409
  Serious: Yes (Other)
  Sender: FDA-Public Use
  Company Number: US-PFIZER INC-2020112428

PATIENT
  Age: 69 Year
  Sex: Male
  Weight: 108.4 kg

DRUGS (1)
  1. TOVIAZ [Suspect]
     Active Substance: FESOTERODINE FUMARATE
     Dosage: 4 MG, UNK

REACTIONS (3)
  - Urge incontinence [Unknown]
  - Condition aggravated [Unknown]
  - Renal failure [Unknown]
